FAERS Safety Report 4455410-3 (Version None)
Quarter: 2004Q3

REPORT INFORMATION
  Report Type: 
  Country: None (occurrence: None)
  Receive Date: 20040830
  Receipt Date: 20040512
  Transmission Date: 20050211
  Serious: No
  Sender: FDA-Public Use
  Company Number: 205278

PATIENT
  Sex: Male
  Weight: 127 kg

DRUGS (6)
  1. XOLAIR [Suspect]
     Indication: ASTHMA
     Dosage: 300 MG,Q2W,SUBCUTANEOUS; 375 MG,Q2W,SUBCUTANEOUS
     Route: 058
     Dates: start: 20040101, end: 20040301
  2. XOLAIR [Suspect]
     Indication: ASTHMA
     Dosage: 300 MG,Q2W,SUBCUTANEOUS; 375 MG,Q2W,SUBCUTANEOUS
     Route: 058
     Dates: start: 20040301
  3. NEXIUM (ESOEMPRAZOLE MAGNESIUM) [Concomitant]
  4. FLOVENT [Concomitant]
  5. SEREVENT DISKUS (SALMETEROL XINAFOATE) [Concomitant]
  6. PREDNISONE [Concomitant]

REACTIONS (2)
  - FATIGUE [None]
  - RED BLOOD CELL SEDIMENTATION RATE INCREASED [None]
